FAERS Safety Report 18058775 (Version 4)
Quarter: 2020Q4

REPORT INFORMATION
  Report Type: Spontaneous
  Country: JP (occurrence: JP)
  Receive Date: 20200723
  Receipt Date: 20201008
  Transmission Date: 20210113
  Serious: Yes (Other)
  Sender: FDA-Public Use
  Company Number: JP-BRISTOL-MYERS SQUIBB COMPANY-BMS-2020-058400

PATIENT
  Sex: Female

DRUGS (1)
  1. ORENCIA [Suspect]
     Active Substance: ABATACEPT
     Indication: PRODUCT USED FOR UNKNOWN INDICATION
     Dosage: 125 MILLIGRAM
     Route: 058

REACTIONS (4)
  - Wrong technique in device usage process [Unknown]
  - Device malfunction [Unknown]
  - Accidental exposure to product [Unknown]
  - Device leakage [Unknown]

NARRATIVE: CASE EVENT DATE: 20200720
